FAERS Safety Report 24346472 (Version 2)
Quarter: 2024Q4

REPORT INFORMATION
  Report Type: Spontaneous
  Country: US (occurrence: US)
  Receive Date: 20240921
  Receipt Date: 20241007
  Transmission Date: 20250115
  Serious: No
  Sender: ROCHE
  Company Number: US-ROCHE-10000084059

PATIENT

DRUGS (1)
  1. XOLAIR [Suspect]
     Active Substance: OMALIZUMAB
     Indication: Product used for unknown indication
     Dosage: TWO DOSES OF XOLAIR GIVEN
     Route: 065

REACTIONS (3)
  - Exposure via skin contact [Unknown]
  - Underdose [Unknown]
  - No adverse event [Unknown]
